FAERS Safety Report 14919955 (Version 1)
Quarter: 2018Q2

REPORT INFORMATION
  Report Type: Spontaneous
  Country: CH (occurrence: CH)
  Receive Date: 20180521
  Receipt Date: 20180521
  Transmission Date: 20180711
  Serious: Yes (Hospitalization)
  Sender: FDA-Public Use
  Company Number: CH-ELI_LILLY_AND_COMPANY-CH201805004822

PATIENT
  Age: 79 Year
  Sex: Female

DRUGS (8)
  1. VESICARE [Suspect]
     Active Substance: SOLIFENACIN SUCCINATE
     Indication: HYPERTONIC BLADDER
     Dosage: 5 MG, DAILY
     Route: 048
     Dates: start: 2014
  2. LAXOBERON [Concomitant]
     Active Substance: SODIUM PICOSULFATE
     Indication: CONSTIPATION
     Dosage: 1 DF, DAILY
     Route: 048
  3. CYMBALTA [Suspect]
     Active Substance: DULOXETINE HYDROCHLORIDE
     Indication: DEPRESSION
     Dosage: 60 MG, DAILY
     Route: 048
  4. ATORVASTATIN PFIZER [Suspect]
     Active Substance: ATORVASTATIN
     Indication: MYOCARDIAL ISCHAEMIA
     Dosage: 40 MG, DAILY
     Route: 048
  5. ZALDIAR [Suspect]
     Active Substance: ACETAMINOPHEN\TRAMADOL HYDROCHLORIDE
     Indication: SPINAL OSTEOARTHRITIS
     Dosage: 1 DF, DAILY
     Route: 048
     Dates: end: 20180424
  6. ASPIRIN CARDIO [Suspect]
     Active Substance: ASPIRIN
     Indication: MYOCARDIAL ISCHAEMIA
     Dosage: 100 MG, DAILY
     Route: 048
  7. SERESTA [Suspect]
     Active Substance: OXAZEPAM
     Indication: DEPRESSION
     Dosage: 7.5 MG, DAILY
     Route: 048
  8. FURADANTIN [Concomitant]
     Active Substance: NITROFURANTOIN
     Indication: HYPERTONIC BLADDER
     Dosage: 100 MG, WEEKLY (1/W)
     Route: 048
     Dates: start: 2014

REACTIONS (1)
  - Drug administration error [Recovered/Resolved]

NARRATIVE: CASE EVENT DATE: 20180422
